FAERS Safety Report 9614266 (Version 1)
Quarter: 2013Q4

REPORT INFORMATION
  Report Type: Spontaneous
  Country: GB (occurrence: GB)
  Receive Date: 20131011
  Receipt Date: 20131011
  Transmission Date: 20140711
  Serious: Yes (Other)
  Sender: FDA-Public Use
  Company Number: GB-RANBAXY-2013R1-73873

PATIENT
  Age: 22 Year
  Sex: Female

DRUGS (3)
  1. CLARITHROMYCIN [Suspect]
     Indication: HELICOBACTER INFECTION
     Dosage: UNK
     Route: 048
     Dates: start: 20130909, end: 20130910
  2. AMOXIL [Concomitant]
     Indication: PRODUCT USED FOR UNKNOWN INDICATION
     Dosage: UNK
     Route: 048
     Dates: start: 20130909
  3. OMEPRAZOLE [Concomitant]
     Indication: PRODUCT USED FOR UNKNOWN INDICATION
     Dosage: UNK
     Route: 048
     Dates: start: 20130909

REACTIONS (4)
  - Dizziness [Recovered/Resolved]
  - Hallucination [Recovered/Resolved]
  - Headache [Recovered/Resolved]
  - Sleep disorder [Recovered/Resolved]
